FAERS Safety Report 5737868-2 (Version None)
Quarter: 2008Q2

REPORT INFORMATION
  Report Type: 
  Country: None (occurrence: None)
  Receive Date: 20080512
  Receipt Date: 20080512
  Transmission Date: 20081010
  Serious: Yes (Other)
  Sender: FDA-Public Use
  Company Number: None

PATIENT
  Age: 50 Year
  Sex: Female
  Weight: 68.0396 kg

DRUGS (1)
  1. ACYCLOVIR [Suspect]
     Indication: ORAL HERPES
     Dosage: 1 TABLET  2X'S DAY
     Dates: start: 20080301, end: 20080322

REACTIONS (1)
  - HEART RATE INCREASED [None]
